FAERS Safety Report 23981528 (Version 3)
Quarter: 2024Q3

REPORT INFORMATION
  Report Type: Spontaneous
  Country: US (occurrence: US)
  Receive Date: 20240617
  Receipt Date: 20240808
  Transmission Date: 20241017
  Serious: Yes (Hospitalization, Disabling, Other)
  Sender: AUROBINDO
  Company Number: US-MLMSERVICE-20240530-PI084056-00138-2

PATIENT
  Age: 22 Year
  Sex: Female

DRUGS (2)
  1. ETHINYL ESTRADIOL\NORGESTIMATE [Suspect]
     Active Substance: ETHINYL ESTRADIOL\NORGESTIMATE
     Indication: Oral contraception
     Dosage: UNK
     Route: 048
  2. DESOGESTREL\ETHINYL ESTRADIOL [Suspect]
     Active Substance: DESOGESTREL\ETHINYL ESTRADIOL
     Indication: Oral contraception
     Dosage: UNK
     Route: 048

REACTIONS (4)
  - Erythema multiforme [Recovered/Resolved]
  - Conjunctivitis [Recovered/Resolved]
  - Stomatitis [Recovered/Resolved]
  - Vulvovaginal inflammation [Recovered/Resolved]
